FAERS Safety Report 9224085 (Version 2)
Quarter: 2013Q2

REPORT INFORMATION
  Report Type: Spontaneous
  Country: CA (occurrence: CA)
  Receive Date: 20130411
  Receipt Date: 20130415
  Transmission Date: 20140414
  Serious: Yes (Other)
  Sender: FDA-Public Use
  Company Number: CA-PFIZER INC-2012269250

PATIENT
  Age: 21 Year
  Sex: Male

DRUGS (1)
  1. LYRICA [Suspect]
     Dosage: 1500 MG PER PARACHUTE
     Dates: start: 201203, end: 201210

REACTIONS (6)
  - Loss of consciousness [Recovered/Resolved]
  - Mydriasis [Not Recovered/Not Resolved]
  - Drug abuse [Recovered/Resolved]
  - Dizziness [Recovered/Resolved]
  - Photophobia [Recovered/Resolved]
  - Hypoaesthesia [Recovered/Resolved]
